FAERS Safety Report 8421392-2 (Version None)
Quarter: 2012Q2

REPORT INFORMATION
  Report Type: 
  Country: None (occurrence: None)
  Receive Date: 20120608
  Receipt Date: 20120605
  Transmission Date: 20120825
  Serious: Yes (Hospitalization, Disabling, Other)
  Sender: FDA-Public Use
  Company Number: PHEH2007US02903

PATIENT
  Sex: Female

DRUGS (58)
  1. CELEXA [Concomitant]
     Dosage: 40 MG, QD
  2. TRICHLORMETHIAZIDE [Concomitant]
     Dosage: 48 MG, QD
  3. GRAPE SEED [Concomitant]
  4. MECLIZINE [Concomitant]
     Dosage: UNK
  5. CHANTIX [Concomitant]
     Indication: SMOKING CESSATION THERAPY
     Dosage: 0.5 MG, BID
  6. DAPTOMYCIN [Concomitant]
     Dosage: 440 MG, UNK
  7. PROCHLORPERAZINE [Concomitant]
     Dosage: 10 MG, PRN
  8. FEMARA [Concomitant]
     Dosage: 2.5 MG, QD
  9. CITALOPRAM HYDROBROMIDE [Concomitant]
     Dosage: 40 MG, QD
  10. NIASPAN [Concomitant]
  11. LOVAZA [Concomitant]
  12. NEXIUM [Concomitant]
     Dosage: UNK
     Route: 048
  13. NAPROXEN (ALEVE) [Concomitant]
  14. MORPHINE [Concomitant]
     Dosage: 4 MG, UNK
  15. DESIPRAMINE HCL [Concomitant]
     Dosage: 10 MG, PRN
  16. AVASTIN [Concomitant]
  17. HYDROCORTISONE SODIUM SUCCINATE [Concomitant]
     Dosage: 100 MG, PRN
  18. INSULIN LISPRO [Concomitant]
     Dosage: UNK
  19. ZOLADEX [Concomitant]
     Dosage: 10.8 MG, UNK
     Route: 058
  20. CELEBREX [Concomitant]
     Dosage: 200 MG, BID
  21. LIDODERM [Concomitant]
  22. CRESTOR [Concomitant]
  23. XELODA [Concomitant]
  24. LOMOTIL [Concomitant]
     Dosage: UNK
  25. DEXAMETHASONE [Concomitant]
     Dosage: 20 MG, QW
  26. FAMOTIDINE [Concomitant]
     Dosage: 20 MG, QW
  27. HYDROXYZINE [Concomitant]
     Dosage: 25 MG, QW
     Route: 048
  28. DIAZEPAM [Concomitant]
     Dosage: 10 MG, UNK
     Route: 048
  29. ACETAMINOPHEN [Concomitant]
     Dosage: UNK
  30. PERIDEX [Concomitant]
  31. OXYCODONE HCL [Concomitant]
  32. LANTUS [Concomitant]
  33. ASPIRIN [Concomitant]
     Dosage: 81 MG, QD
  34. VANCOMYCIN [Concomitant]
     Dosage: 1 G, QD
  35. SENNA-S (DOCUSATE SODIUM/SENNOSIDES) [Concomitant]
     Dosage: UNK
     Route: 048
  36. METOPROLOL SUCCINATE [Concomitant]
     Dosage: UNK
  37. LIPITOR [Concomitant]
     Dosage: 10 MG, QD
  38. DIPHENHYDRAMINE HCL [Concomitant]
     Dosage: 50 MG, QW
  39. EPINEPHRINE [Concomitant]
     Dosage: 1 MG, PRN
  40. AROMASIN [Concomitant]
     Indication: BREAST CANCER
  41. ZOMETA [Suspect]
     Indication: BONE LOSS
  42. XANAX [Concomitant]
     Dosage: 0.5 MG, TID
  43. FASLODEX [Concomitant]
  44. NEURONTIN [Concomitant]
  45. FISH OIL [Concomitant]
  46. TAXOL [Concomitant]
  47. FENTANYL [Concomitant]
     Route: 062
  48. TAMOXIFEN CITRATE [Concomitant]
     Indication: BREAST CANCER
     Dosage: 20 MG, QD
     Dates: start: 20030605
  49. METRONIDAZOLE [Concomitant]
     Dosage: 500 MG, UNK
     Route: 048
  50. ZOMETA [Suspect]
     Indication: BONE NEOPLASM MALIGNANT
     Dates: start: 20060101, end: 20060417
  51. PRILOSEC [Concomitant]
     Dosage: UNK
  52. MULTI-VITAMINS [Concomitant]
  53. METFORMIN HCL [Concomitant]
  54. TRICOR [Concomitant]
  55. EFFEXOR [Concomitant]
     Dosage: 37.5 MG, QD
     Route: 048
  56. LEVOFLOXACIN [Concomitant]
     Dosage: 500 MG, ONCE/SINGLE
  57. HYDROMORPHONE HYDROCHLORIDE [Concomitant]
     Dosage: 2 MG, UNK
     Route: 048
  58. PROTONIX [Concomitant]
     Dosage: 40 MG, QD

REACTIONS (63)
  - PAIN [None]
  - ACTINOMYCOSIS [None]
  - SPINAL CLAUDICATION [None]
  - HEADACHE [None]
  - ACUTE SINUSITIS [None]
  - HEAD INJURY [None]
  - PATHOLOGICAL FRACTURE [None]
  - HAEMANGIOMA [None]
  - BONE DISORDER [None]
  - TOOTH ABSCESS [None]
  - DIABETES MELLITUS [None]
  - OSTEOARTHRITIS [None]
  - DIARRHOEA [None]
  - HYPOTHYROIDISM [None]
  - OTITIS MEDIA ACUTE [None]
  - PULMONARY INFARCTION [None]
  - CELLULITIS [None]
  - PNEUMONIA [None]
  - OSTEONECROSIS OF JAW [None]
  - METABOLIC SYNDROME [None]
  - METASTASES TO LUNG [None]
  - INSOMNIA [None]
  - HYPERTENSION [None]
  - FALL [None]
  - MUSCLE SPASMS [None]
  - PHARYNGITIS [None]
  - VERTEBRAL FORAMINAL STENOSIS [None]
  - METASTASES TO SOFT TISSUE [None]
  - COUGH [None]
  - CANDIDIASIS [None]
  - ARTHRALGIA [None]
  - SPINAL COMPRESSION FRACTURE [None]
  - LYMPHADENOPATHY [None]
  - GENERAL PHYSICAL HEALTH DETERIORATION [None]
  - WEIGHT INCREASED [None]
  - DEPRESSION [None]
  - GROIN ABSCESS [None]
  - AORTIC ARTERIOSCLEROSIS [None]
  - OBSTRUCTIVE AIRWAYS DISORDER [None]
  - ANXIETY [None]
  - DECREASED INTEREST [None]
  - DYSLIPIDAEMIA [None]
  - GASTROOESOPHAGEAL REFLUX DISEASE [None]
  - ORTHOSTATIC HYPOTENSION [None]
  - EXCORIATION [None]
  - DIVERTICULUM INTESTINAL [None]
  - FOLLICULITIS [None]
  - PULMONARY EMBOLISM [None]
  - GLUCOSE TOLERANCE IMPAIRED [None]
  - METASTASES TO LIVER [None]
  - BLOOD PRESSURE INCREASED [None]
  - POLYNEUROPATHY [None]
  - BRONCHIAL HYPERREACTIVITY [None]
  - NAUSEA [None]
  - APHTHOUS STOMATITIS [None]
  - PALMAR-PLANTAR ERYTHRODYSAESTHESIA SYNDROME [None]
  - ROAD TRAFFIC ACCIDENT [None]
  - AMNESIA [None]
  - PRIMARY SEQUESTRUM [None]
  - DIZZINESS [None]
  - PYREXIA [None]
  - LIGAMENT SPRAIN [None]
  - CARDIAC DISORDER [None]
